FAERS Safety Report 11539963 (Version 1)
Quarter: 2015Q3

REPORT INFORMATION
  Report Type: Report from Study
  Country: US (occurrence: US)
  Receive Date: 20150923
  Receipt Date: 20150923
  Transmission Date: 20151125
  Serious: Yes (Hospitalization)
  Sender: FDA-Public Use
  Company Number: US-BIOGENIDEC-2015BI127626

PATIENT
  Sex: Female
  Weight: 117 kg

DRUGS (23)
  1. CONTOUR [Concomitant]
  2. TIZANIDINE. [Concomitant]
     Active Substance: TIZANIDINE
  3. GABAPENTIN. [Concomitant]
     Active Substance: GABAPENTIN
  4. TECFIDERA [Suspect]
     Active Substance: DIMETHYL FUMARATE
     Indication: MULTIPLE SCLEROSIS
     Route: 048
     Dates: start: 2013
  5. ATORVASTATIN [Concomitant]
     Active Substance: ATORVASTATIN
  6. POTASSIUM [Concomitant]
     Active Substance: POTASSIUM
  7. HYDROCODONE [Concomitant]
     Active Substance: HYDROCODONE
  8. ISOSORBIDE. [Concomitant]
     Active Substance: ISOSORBIDE
  9. TRAZODONE [Concomitant]
     Active Substance: TRAZODONE HYDROCHLORIDE
  10. DULOXETINE. [Concomitant]
     Active Substance: DULOXETINE
  11. GLIMEPIRIDE. [Concomitant]
     Active Substance: GLIMEPIRIDE
  12. SYMBICORT [Concomitant]
     Active Substance: BUDESONIDE\FORMOTEROL FUMARATE DIHYDRATE
  13. MODAFINIL. [Concomitant]
     Active Substance: MODAFINIL
  14. DEXILANT [Concomitant]
     Active Substance: DEXLANSOPRAZOLE
  15. METOCLOPRAMIDE. [Concomitant]
     Active Substance: METOCLOPRAMIDE
  16. BACLOFEN. [Concomitant]
     Active Substance: BACLOFEN
  17. TOPIRAMATE. [Concomitant]
     Active Substance: TOPIRAMATE
  18. AZELASTINE [Concomitant]
     Active Substance: AZELASTINE
  19. DIAZEPAM. [Concomitant]
     Active Substance: DIAZEPAM
  20. LEVOTHYROXINE. [Concomitant]
     Active Substance: LEVOTHYROXINE
  21. FUROSEMIDE. [Concomitant]
     Active Substance: FUROSEMIDE
  22. CARBAMAZEPINE. [Concomitant]
     Active Substance: CARBAMAZEPINE
  23. METFORMIN [Concomitant]
     Active Substance: METFORMIN HYDROCHLORIDE

REACTIONS (3)
  - Diarrhoea [Unknown]
  - Fall [Recovered/Resolved]
  - Depression [Unknown]

NARRATIVE: CASE EVENT DATE: 2013
